FAERS Safety Report 5373018-2 (Version None)
Quarter: 2007Q2

REPORT INFORMATION
  Report Type: 
  Country: None (occurrence: None)
  Receive Date: 20070619
  Receipt Date: 20070330
  Transmission Date: 20071010
  Serious: No
  Sender: FDA-Public Use
  Company Number: 2007US000724

PATIENT
  Sex: Female

DRUGS (1)
  1. VESICARE [Suspect]
     Indication: DRUG USE FOR UNKNOWN INDICATION
     Dosage: 5 MG

REACTIONS (1)
  - MUSCLE SPASMS [None]
